FAERS Safety Report 8201150-4 (Version None)
Quarter: 2012Q1

REPORT INFORMATION
  Report Type: 
  Country: None (occurrence: None)
  Receive Date: 20120312
  Receipt Date: 20120302
  Transmission Date: 20120608
  Serious: Yes (Hospitalization, Disabling, Other)
  Sender: FDA-Public Use
  Company Number: GB-JNJFOC-20120301655

PATIENT
  Age: 63 Year
  Sex: Female

DRUGS (9)
  1. SENNA [Concomitant]
     Indication: CONSTIPATION
     Route: 048
     Dates: start: 20110801
  2. FERROUS SULFATE TAB [Concomitant]
     Indication: ANAEMIA
     Route: 048
     Dates: start: 20110801
  3. ZOPICLONE [Concomitant]
     Indication: POOR QUALITY SLEEP
     Route: 048
     Dates: start: 20110801
  4. RISPERIDONE [Suspect]
     Indication: SCHIZOPHRENIA
     Route: 048
     Dates: start: 20110801
  5. OXYBUTYNIN [Concomitant]
     Indication: URINARY INCONTINENCE
     Route: 048
     Dates: start: 20110801
  6. CLOZARIL [Suspect]
     Indication: SCHIZOPHRENIA
     Route: 048
  7. CLOZARIL [Suspect]
     Route: 048
     Dates: start: 20110801
  8. RABEPRAZOLE SODIUM [Concomitant]
     Indication: PRODUCT USED FOR UNKNOWN INDICATION
     Route: 048
     Dates: start: 20110801
  9. CLOZARIL [Suspect]
     Route: 048
     Dates: start: 19970414

REACTIONS (3)
  - MALAISE [None]
  - SCHIZOPHRENIA [None]
  - MENTAL IMPAIRMENT [None]
